FAERS Safety Report 8244001-4 (Version None)
Quarter: 2012Q1

REPORT INFORMATION
  Report Type: 
  Country: None (occurrence: None)
  Receive Date: 20120329
  Receipt Date: 20120322
  Transmission Date: 20120608
  Serious: Yes (Death)
  Sender: FDA-Public Use
  Company Number: US-GILEAD-2012-0051806

PATIENT
  Sex: Male

DRUGS (2)
  1. LETAIRIS [Suspect]
     Indication: IDIOPATHIC PULMONARY FIBROSIS
     Dosage: 5 UNK, UNK
     Route: 048
     Dates: start: 20120208, end: 20120217
  2. LETAIRIS [Suspect]
     Indication: PULMONARY HYPERTENSION
     Dosage: 10 MG, UNK
     Route: 048
     Dates: start: 20120209, end: 20120306

REACTIONS (3)
  - PNEUMONIA [None]
  - IDIOPATHIC PULMONARY FIBROSIS [None]
  - RESPIRATORY FAILURE [None]
